FAERS Safety Report 9730248 (Version 4)
Quarter: 2014Q1

REPORT INFORMATION
  Report Type: Report from Study
  Country: LU (occurrence: LU)
  Receive Date: 20131202
  Receipt Date: 20140203
  Transmission Date: 20141002
  Serious: Yes (Death, Hospitalization, Other)
  Sender: FDA-Public Use
  Company Number: LU-CELGENEUS-098-C4047-13114912

PATIENT
  Age: 61 Year
  Sex: Female
  Weight: 60 kg

DRUGS (9)
  1. CC-4047 [Suspect]
     Indication: PLASMA CELL MYELOMA
     Dosage: 4 MILLIGRAM
     Route: 048
     Dates: start: 20131010, end: 20131031
  2. BISPHOSPHONATES [Concomitant]
     Indication: PLASMA CELL MYELOMA
     Route: 065
     Dates: start: 20131010
  3. DEXAMETHASONE [Concomitant]
     Indication: PLASMA CELL MYELOMA
     Route: 065
     Dates: start: 200704, end: 200707
  4. DEXAMETHASONE [Concomitant]
     Route: 065
     Dates: start: 201007, end: 201012
  5. DEXAMETHASONE [Concomitant]
     Route: 065
     Dates: start: 201101, end: 201103
  6. DEXAMETHASONE [Concomitant]
     Route: 065
     Dates: start: 200912, end: 201004
  7. DEXAMETHASONE [Concomitant]
     Route: 065
  8. DEXAMETHASONE [Concomitant]
     Route: 065
     Dates: start: 20131010, end: 20131031
  9. CAELYX [Concomitant]
     Indication: PLASMA CELL MYELOMA
     Route: 065
     Dates: start: 20130927

REACTIONS (1)
  - Neutropenic sepsis [Fatal]
